FAERS Safety Report 21666493 (Version 1)
Quarter: 2022Q4

REPORT INFORMATION
  Report Type: Report from Study
  Country: EG (occurrence: EG)
  Receive Date: 20221201
  Receipt Date: 20221201
  Transmission Date: 20230113
  Serious: Yes (Death, Other)
  Sender: FDA-Public Use
  Company Number: EG-002147023-NVSC2022EG139436

PATIENT
  Age: 72 Year
  Sex: Female

DRUGS (4)
  1. FEMARA [Suspect]
     Active Substance: LETROZOLE
     Indication: Breast cancer metastatic
     Dosage: 1 DOSAGE FORM, QD
     Route: 048
     Dates: start: 202006, end: 20220615
  2. FEMARA [Suspect]
     Active Substance: LETROZOLE
     Indication: Metastases to liver
     Dosage: UNK
     Route: 048
     Dates: start: 20220615
  3. KISQALI [Suspect]
     Active Substance: RIBOCICLIB
     Indication: Breast cancer metastatic
     Dosage: UNK
     Route: 048
  4. OSTEOCARE [Concomitant]
     Active Substance: CALCIUM\CHOLECALCIFEROL\MAGNESIUM\ZINC
     Indication: Bone disorder
     Dosage: 1 DOSAGE FORM, QD
     Route: 065
     Dates: start: 202006

REACTIONS (3)
  - Death [Fatal]
  - Metastases to liver [Unknown]
  - Drug ineffective [Unknown]

NARRATIVE: CASE EVENT DATE: 20220607
